FAERS Safety Report 9258322 (Version 1)
Quarter: 2013Q2

REPORT INFORMATION
  Report Type: Spontaneous
  Country: US (occurrence: None)
  Receive Date: 20130424
  Receipt Date: 20130424
  Transmission Date: 20140414
  Serious: Yes (Other)
  Sender: FDA-Public Use
  Company Number: None

PATIENT
  Age: 78 Year
  Sex: Male

DRUGS (1)
  1. LEVOFLOXACIN [Suspect]
     Indication: BRONCHITIS
     Route: 048
     Dates: start: 20130401, end: 20130405

REACTIONS (4)
  - Gait disturbance [None]
  - Muscular weakness [None]
  - Pain [None]
  - Musculoskeletal stiffness [None]
